FAERS Safety Report 24258377 (Version 2)
Quarter: 2025Q4

REPORT INFORMATION
  Report Type: Spontaneous
  Country: US (occurrence: US)
  Receive Date: 20240828
  Receipt Date: 20251006
  Transmission Date: 20260118
  Serious: Yes (Other)
  Sender: PFIZER
  Company Number: US-PFIZER INC-202400242069

PATIENT
  Age: 66 Year
  Sex: Female

DRUGS (1)
  1. BOSULIF [Suspect]
     Active Substance: BOSUTINIB MONOHYDRATE
     Dosage: 500 MG TABLETS

REACTIONS (5)
  - Fall [Unknown]
  - Foot fracture [Unknown]
  - Infection [Unknown]
  - Fungal infection [Unknown]
  - Pruritus [Unknown]
